FAERS Safety Report 9812216 (Version 1)
Quarter: 2014Q1

REPORT INFORMATION
  Report Type: Spontaneous
  Country: CN (occurrence: CN)
  Receive Date: 20140112
  Receipt Date: 20140112
  Transmission Date: 20141002
  Serious: Yes (Other)
  Sender: FDA-Public Use
  Company Number: CN-MYLANLABS-2013S1029149

PATIENT
  Age: 66 Year
  Sex: Male

DRUGS (7)
  1. CICLOSPORIN [Suspect]
     Indication: IMMUNOSUPPRESSANT DRUG THERAPY
     Route: 065
     Dates: end: 201012
  2. MYCOPHENOLATE MOFETIL [Suspect]
     Indication: IMMUNOSUPPRESSANT DRUG THERAPY
     Route: 065
     Dates: end: 201203
  3. SIROLIMUS [Suspect]
     Indication: IMMUNOSUPPRESSANT DRUG THERAPY
     Dosage: INCREASED TO 0.75MG ONCE DAILY IN MAR 2012
     Route: 065
     Dates: start: 201012, end: 201208
  4. SIROLIMUS [Suspect]
     Indication: IMMUNOSUPPRESSANT DRUG THERAPY
     Route: 065
     Dates: start: 201012, end: 201208
  5. CHEMOTHERAPEUTICS [Suspect]
     Indication: LUNG ADENOCARCINOMA STAGE IV
     Route: 048
     Dates: start: 20120301, end: 201208
  6. PREDNISOLONE [Concomitant]
     Indication: IMMUNOSUPPRESSANT DRUG THERAPY
     Dosage: REDUCED TO 5MG ONCE DAILY IN DEC 2010
     Route: 065
  7. PREDNISOLONE [Concomitant]
     Indication: IMMUNOSUPPRESSANT DRUG THERAPY
     Route: 065

REACTIONS (4)
  - Lung adenocarcinoma stage IV [Recovering/Resolving]
  - Interstitial lung disease [Recovering/Resolving]
  - Interstitial lung disease [Recovering/Resolving]
  - Skin toxicity [Unknown]
